FAERS Safety Report 13926622 (Version 1)
Quarter: 2017Q3

REPORT INFORMATION
  Report Type: Spontaneous
  Country: US (occurrence: US)
  Receive Date: 20170831
  Receipt Date: 20170831
  Transmission Date: 20171127
  Serious: No
  Sender: FDA-Public Use
  Company Number: US-SUNOVION-2016SUN002565

PATIENT
  Sex: Male

DRUGS (1)
  1. BROVANA [Suspect]
     Active Substance: ARFORMOTEROL TARTRATE
     Indication: EMPHYSEMA
     Dosage: 15 ?G, BID
     Route: 055
     Dates: start: 2016

REACTIONS (9)
  - Swelling face [Not Recovered/Not Resolved]
  - Cough [Unknown]
  - Salivary hypersecretion [Not Recovered/Not Resolved]
  - Headache [Unknown]
  - Nausea [Unknown]
  - Sensory disturbance [Unknown]
  - Pain in extremity [Unknown]
  - Swelling [Not Recovered/Not Resolved]
  - Heart rate increased [Unknown]
